FAERS Safety Report 9327562 (Version 1)
Quarter: 2013Q2

REPORT INFORMATION
  Report Type: Spontaneous
  Country: US (occurrence: US)
  Receive Date: 20130604
  Receipt Date: 20130604
  Transmission Date: 20140414
  Serious: No
  Sender: FDA-Public Use
  Company Number: US-PFIZER INC-2013163525

PATIENT
  Age: 47 Year
  Sex: Female

DRUGS (1)
  1. PROVERA [Suspect]
     Indication: ADENOMYOSIS
     Dosage: 2.5 MG, UNK
     Dates: end: 20130513

REACTIONS (1)
  - Menorrhagia [Unknown]
